FAERS Safety Report 5036123-6 (Version None)
Quarter: 2006Q2

REPORT INFORMATION
  Report Type: 
  Country: None (occurrence: None)
  Receive Date: 20060601
  Receipt Date: 20060421
  Transmission Date: 20061013
  Serious: No
  Sender: FDA-Public Use
  Company Number: US200604003515

PATIENT
  Age: 81 Year
  Sex: Female

DRUGS (2)
  1. CYMBALTA [Suspect]
     Indication: PAIN
     Dosage: 30 MG
     Dates: start: 20051001
  2. SYNTHROID [Concomitant]

REACTIONS (1)
  - DIFFICULTY IN WALKING [None]
